FAERS Safety Report 7797608-2 (Version None)
Quarter: 2011Q3

REPORT INFORMATION
  Report Type: 
  Country: None (occurrence: None)
  Receive Date: 20110927
  Receipt Date: 20110921
  Transmission Date: 20111222
  Serious: Yes (Other)
  Sender: FDA-Public Use
  Company Number: 2011029503

PATIENT
  Age: 36 Year
  Sex: Female
  Weight: 50.8029 kg

DRUGS (7)
  1. HIZENTRA [Suspect]
     Indication: IMMUNODEFICIENCY COMMON VARIABLE
     Dosage: SEE IMAGE
     Route: 058
     Dates: start: 20110804
  2. HIZENTRA [Suspect]
     Indication: IMMUNODEFICIENCY COMMON VARIABLE
     Dosage: SEE IMAGE
     Route: 058
     Dates: start: 20110914
  3. VERAMYST (FLUTICASONE) [Concomitant]
  4. HIZENTRA [Suspect]
  5. TYLENOL EX (PARACETAMOL) [Concomitant]
  6. XOPENEX [Concomitant]
  7. CLONAZEPAM [Concomitant]

REACTIONS (2)
  - MENINGITIS ASEPTIC [None]
  - DEHYDRATION [None]
